FAERS Safety Report 4943567-7 (Version None)
Quarter: 2006Q1

REPORT INFORMATION
  Report Type: 
  Country: None (occurrence: None)
  Receive Date: 20060314
  Receipt Date: 20060221
  Transmission Date: 20060701
  Serious: Yes (Hospitalization)
  Sender: FDA-Public Use
  Company Number: JP-BOEHRINGER INGELHEIM PHARMACEUTICALS, INC.-2006-BP-02036NB

PATIENT
  Sex: Female
  Weight: 51 kg

DRUGS (3)
  1. BI-SIFROL TABLETS [Suspect]
     Indication: PARKINSON'S DISEASE
     Route: 048
     Dates: start: 20051222, end: 20051224
  2. GASTER D [Concomitant]
     Indication: GASTRITIS
     Route: 048
  3. URSO [Concomitant]
     Indication: HEPATITIS CHOLESTATIC
     Route: 048

REACTIONS (1)
  - NEUROLEPTIC MALIGNANT SYNDROME [None]
